FAERS Safety Report 9798033 (Version 3)
Quarter: 2014Q1

REPORT INFORMATION
  Report Type: Spontaneous
  Country: JP (occurrence: JP)
  Receive Date: 20140106
  Receipt Date: 20140130
  Transmission Date: 20141002
  Serious: Yes (Other)
  Sender: FDA-Public Use
  Company Number: JP-ABBVIE-14P-087-1185913-00

PATIENT
  Age: 75 Year
  Sex: Female

DRUGS (3)
  1. CLARITH TAB 200 MG [Suspect]
     Indication: PRODUCT USED FOR UNKNOWN INDICATION
     Route: 048
  2. DIGITALIS PREPARATION [Suspect]
     Indication: PRODUCT USED FOR UNKNOWN INDICATION
  3. EDIROL [Concomitant]
     Indication: PRODUCT USED FOR UNKNOWN INDICATION

REACTIONS (1)
  - Ventricular fibrillation [Recovered/Resolved]
